FAERS Safety Report 10463552 (Version 2)
Quarter: 2014Q4

REPORT INFORMATION
  Report Type: Spontaneous
  Country: US (occurrence: US)
  Receive Date: 20140919
  Receipt Date: 20141016
  Transmission Date: 20150528
  Serious: Yes (Other)
  Sender: FDA-Public Use
  Company Number: US-JNJFOC-20140821038

PATIENT
  Age: 23 Year
  Sex: Female
  Weight: 97.07 kg

DRUGS (6)
  1. INVEGA SUSTENNA [Suspect]
     Active Substance: PALIPERIDONE PALMITATE
     Indication: BIPOLAR DISORDER
     Route: 030
     Dates: start: 201405, end: 201408
  2. TEMAZEPAM. [Concomitant]
     Active Substance: TEMAZEPAM
     Indication: INSOMNIA
     Route: 065
     Dates: start: 201407
  3. DESYREL (TRAZADONE HCL) [Concomitant]
     Indication: INSOMNIA
     Route: 065
  4. BUSPAR [Concomitant]
     Active Substance: BUSPIRONE HYDROCHLORIDE
     Indication: ANXIETY
     Route: 065
     Dates: start: 201406
  5. METFORMIN [Concomitant]
     Active Substance: METFORMIN HYDROCHLORIDE
     Indication: TYPE 2 DIABETES MELLITUS
     Route: 065
     Dates: start: 201404
  6. VITAMIN D [Concomitant]
     Active Substance: CHOLECALCIFEROL
     Indication: FATIGUE
     Dosage: 50,000 IU
     Route: 065
     Dates: start: 201407

REACTIONS (5)
  - Breast enlargement [Recovering/Resolving]
  - Galactorrhoea [Unknown]
  - Hyperprolactinaemia [Recovering/Resolving]
  - Product use issue [Unknown]
  - Menstruation irregular [Recovering/Resolving]

NARRATIVE: CASE EVENT DATE: 201405
